FAERS Safety Report 10247993 (Version 2)
Quarter: 2014Q3

REPORT INFORMATION
  Report Type: Spontaneous
  Country: US (occurrence: US)
  Receive Date: 20140619
  Receipt Date: 20140707
  Transmission Date: 20150326
  Serious: Yes (Death)
  Sender: FDA-Public Use
  Company Number: US-ACTELION-A-NJ2014-100418

PATIENT
  Age: 68 Year
  Sex: Male

DRUGS (3)
  1. TYVASO [Concomitant]
     Active Substance: TREPROSTINIL
     Dosage: UNK
  2. REVATIO [Concomitant]
     Active Substance: SILDENAFIL CITRATE
  3. OPSUMIT [Suspect]
     Active Substance: MACITENTAN
     Indication: PULMONARY ARTERIAL HYPERTENSION
     Dosage: 10 MG, QD
     Route: 048
     Dates: start: 20140403

REACTIONS (1)
  - Death [Fatal]

NARRATIVE: CASE EVENT DATE: 20140605
